FAERS Safety Report 6407797-X (Version None)
Quarter: 2009Q4

REPORT INFORMATION
  Report Type: 
  Country: None (occurrence: None)
  Receive Date: 20091015
  Receipt Date: 20091002
  Transmission Date: 20100525
  Serious: Yes (Hospitalization)
  Sender: FDA-Public Use
  Company Number: PAR_03210_2009

PATIENT
  Age: 79 Year
  Sex: Female
  Weight: 43 kg

DRUGS (10)
  1. IBUPROFEN [Suspect]
     Indication: PAIN
     Dosage: (600 MG QD ORAL)
     Route: 048
     Dates: start: 20090501
  2. HYDROMORPHONE HCL [Suspect]
     Indication: PAIN
     Dosage: (8 MG QD ORAL)
     Route: 048
     Dates: start: 20090501, end: 20090826
  3. PALLADONE [Suspect]
     Indication: PAIN
     Dosage: (1.3 MG QD ORAL)
     Route: 048
     Dates: start: 20090501, end: 20090826
  4. ISOPTIN RR PLUS (LORSARTAN/HYDROCHLOROTHIAZIDE) [Suspect]
     Indication: ATRIAL FIBRILLATION
     Dosage: (1 DF QD, 240 MG/12.5 MG ORAL)
     Route: 048
     Dates: start: 20070101
  5. LOSARTAN POTASSIUM AND HYDROCHLOROTHIAZIDE [Suspect]
     Indication: HYPERTENSION
     Dosage: (1 DF QD, 100 MG/12.5 MG ORAL)
     Route: 048
  6. CELEBREX [Concomitant]
  7. DOMPERIDONE [Concomitant]
  8. FALITHROM [Concomitant]
  9. PENTAERYTHRITOL TETRANITRATE [Concomitant]
  10. PANTOPRAZOLE [Concomitant]

REACTIONS (4)
  - ABDOMINAL PAIN UPPER [None]
  - FAECALOMA [None]
  - GASTROINTESTINAL DISORDER [None]
  - HYPOKALAEMIA [None]
